FAERS Safety Report 9166669 (Version 1)
Quarter: 2013Q1

REPORT INFORMATION
  Report Type: Spontaneous
  Country: US (occurrence: US)
  Receive Date: 20130315
  Receipt Date: 20130315
  Transmission Date: 20140127
  Serious: No
  Sender: FDA-Public Use
  Company Number: US-ASTRAZENECA-2013SE14102

PATIENT
  Age: 61 Year
  Sex: Female
  Weight: 47.2 kg

DRUGS (9)
  1. NEXIUM [Suspect]
     Indication: DYSPEPSIA
     Dosage: ONCE DAILY
     Route: 048
     Dates: end: 2010
  2. NEXIUM [Suspect]
     Indication: HIATUS HERNIA
     Dosage: ONCE DAILY
     Route: 048
     Dates: end: 2010
  3. NEXIUM [Suspect]
     Indication: DYSPEPSIA
     Dosage: TWICE DAILY
     Route: 048
  4. NEXIUM [Suspect]
     Indication: HIATUS HERNIA
     Dosage: TWICE DAILY
     Route: 048
  5. NEXIUM [Suspect]
     Indication: DYSPEPSIA
     Dosage: BEFORE DINNER
     Route: 048
  6. NEXIUM [Suspect]
     Indication: HIATUS HERNIA
     Dosage: BEFORE DINNER
     Route: 048
  7. PRILOSEC [Suspect]
     Indication: DYSPEPSIA
     Dosage: ONCE DAILY
     Route: 048
  8. PRILOSEC [Suspect]
     Indication: HIATUS HERNIA
     Dosage: ONCE DAILY
     Route: 048
  9. DEXILANT [Concomitant]

REACTIONS (4)
  - Gastrooesophageal reflux disease [Unknown]
  - Intentional drug misuse [Unknown]
  - Drug effect incomplete [Unknown]
  - Drug ineffective [Unknown]
